FAERS Safety Report 23308156 (Version 1)
Quarter: 2023Q4

REPORT INFORMATION
  Report Type: Report from Study
  Country: US (occurrence: US)
  Receive Date: 20231218
  Receipt Date: 20231218
  Transmission Date: 20240110
  Serious: Yes (Other)
  Sender: FDA-Public Use
  Company Number: US-002147023-NVSC2023US263279

PATIENT
  Age: 55 Year
  Sex: Female
  Weight: 61.23 kg

DRUGS (14)
  1. COSENTYX [Suspect]
     Active Substance: SECUKINUMAB
     Indication: Psoriasis
     Dosage: 300 MG, QW (TWO 150 MG, LOADING DOSE FOR 5 WEEKS)
     Route: 058
  2. METOPROLOL [Suspect]
     Active Substance: METOPROLOL
     Indication: Psoriasis
     Dosage: 200 MG
     Route: 065
  3. HYDRALAZINE [Suspect]
     Active Substance: HYDRALAZINE HYDROCHLORIDE
     Indication: Psoriasis
     Dosage: 25 MG
     Route: 065
  4. IRBESARTAN [Suspect]
     Active Substance: IRBESARTAN
     Indication: Product used for unknown indication
     Dosage: UNK
     Route: 065
  5. METHOTREXATE SODIUM [Concomitant]
     Active Substance: METHOTREXATE SODIUM
     Indication: Product used for unknown indication
     Dosage: UNK, QW (25 GAUGE NEEDLES, 5/8 INCH, SAFETY-LOK 3ML 27 GAUGE, 5/8 NEEDLES)
     Route: 065
  6. PREDNISONE [Concomitant]
     Active Substance: PREDNISONE
     Indication: Product used for unknown indication
     Dosage: 1 DOSAGE FORM, QD
     Route: 048
  7. TRIAMCINOLONE ACETONIDE [Concomitant]
     Active Substance: TRIAMCINOLONE ACETONIDE
     Indication: Product used for unknown indication
     Dosage: 0.1 %, BID (APPLY TO AFFECTED SKIN)
     Route: 065
  8. CEVIMELINE HYDROCHLORIDE [Concomitant]
     Active Substance: CEVIMELINE HYDROCHLORIDE
     Indication: Product used for unknown indication
     Dosage: 1 DOSAGE FORM, TID
     Route: 048
  9. METHOTREXATE SODIUM [Concomitant]
     Active Substance: METHOTREXATE SODIUM
     Indication: Product used for unknown indication
     Dosage: 0.8 ML, QW (BD TB SYRINGE 25G/5X8^)
     Route: 058
  10. FOLIC ACID [Concomitant]
     Active Substance: FOLIC ACID
     Indication: Product used for unknown indication
     Dosage: 2 DOSAGE FORM, QD
     Route: 048
  11. ZOLOFT [Concomitant]
     Active Substance: SERTRALINE HYDROCHLORIDE
     Indication: Product used for unknown indication
     Dosage: 100 MG, AT HS
     Route: 065
  12. METOPROLOL TARTRATE [Concomitant]
     Active Substance: METOPROLOL TARTRATE
     Indication: Product used for unknown indication
     Dosage: 200 MG, QD
     Route: 065
  13. LOSARTAN POTASSIUM [Concomitant]
     Active Substance: LOSARTAN POTASSIUM
     Indication: Product used for unknown indication
     Dosage: 160 MG, AT HS
     Route: 065
  14. OMEPRAZOLE [Concomitant]
     Active Substance: OMEPRAZOLE
     Indication: Product used for unknown indication
     Dosage: 1 DOSAGE FORM, BID
     Route: 048

REACTIONS (35)
  - Pneumonia [Unknown]
  - Scleritis [Unknown]
  - Sjogren^s syndrome [Unknown]
  - Hypertension [Unknown]
  - Polyarthritis [Unknown]
  - Disease progression [Unknown]
  - Fibromyalgia [Unknown]
  - Pain in extremity [Unknown]
  - Gait disturbance [Unknown]
  - Arthritis [Unknown]
  - Back pain [Unknown]
  - Anxiety [Unknown]
  - Nasal congestion [Unknown]
  - Oral disorder [Unknown]
  - Tongue dry [Unknown]
  - Joint swelling [Unknown]
  - Skin disorder [Unknown]
  - Dry eye [Unknown]
  - Pain [Unknown]
  - Corneal erosion [Unknown]
  - Oral candidiasis [Unknown]
  - Mouth ulceration [Unknown]
  - Arthralgia [Unknown]
  - Peripheral swelling [Unknown]
  - Musculoskeletal stiffness [Unknown]
  - Myalgia [Unknown]
  - Greater trochanteric pain syndrome [Unknown]
  - Headache [Unknown]
  - COVID-19 [Unknown]
  - Tenderness [Unknown]
  - Psoriasis [Unknown]
  - Exfoliative rash [Unknown]
  - Rash erythematous [Unknown]
  - Skin exfoliation [Unknown]
  - Drug ineffective [Unknown]

NARRATIVE: CASE EVENT DATE: 20210409
